FAERS Safety Report 9722046 (Version 1)
Quarter: 2013Q4

REPORT INFORMATION
  Report Type: Spontaneous
  Country: US (occurrence: US)
  Receive Date: 20131202
  Receipt Date: 20131202
  Transmission Date: 20140711
  Serious: No
  Sender: FDA-Public Use
  Company Number: US-BIOGENIDEC-2013BI084988

PATIENT
  Age: 48 Year
  Sex: Female
  Weight: 113 kg

DRUGS (3)
  1. TECFIDERA [Suspect]
     Indication: MULTIPLE SCLEROSIS
     Route: 048
     Dates: start: 20130601, end: 20130622
  2. LASIX [Concomitant]
  3. PROBIOTIC [Concomitant]

REACTIONS (1)
  - Hepatic enzyme increased [Unknown]
